FAERS Safety Report 19064200 (Version 1)
Quarter: 2021Q1

REPORT INFORMATION
  Report Type: Report from Study
  Country: FR (occurrence: FR)
  Receive Date: 20210326
  Receipt Date: 20210326
  Transmission Date: 20210420
  Serious: Yes (Death)
  Sender: FDA-Public Use
  Company Number: FR-DSJP-DSE-2021-108930

PATIENT
  Sex: Female
  Weight: 45 kg

DRUGS (1)
  1. ENHERTU [Suspect]
     Active Substance: FAM-TRASTUZUMAB DERUXTECAN-NXKI
     Indication: HER2 POSITIVE BREAST CANCER
     Dosage: 1 DF, CYCLIC (ONCE PER 21 DAY CYCLE)
     Route: 042

REACTIONS (3)
  - COVID-19 [Fatal]
  - Lung disorder [Fatal]
  - Cardiac disorder [Fatal]
